FAERS Safety Report 4662254-6 (Version None)
Quarter: 2005Q2

REPORT INFORMATION
  Report Type: 
  Country: None (occurrence: None)
  Receive Date: 20050512
  Receipt Date: 20050427
  Transmission Date: 20051028
  Serious: Yes (Other)
  Sender: FDA-Public Use
  Company Number: 200502IM000013

PATIENT
  Age: 67 Year
  Sex: Male
  Weight: 73.9363 kg

DRUGS (5)
  1. INTERFERON  ALFACON-1 [Suspect]
     Indication: HEPATITIS C
     Dosage: 15 UG, QD, SUBCUTANEOUS
     Route: 058
     Dates: start: 20050125, end: 20050201
  2. RIBAVIRIN [Suspect]
     Indication: HEPATITIS C
     Dosage: SEE  IMAGE
     Route: 048
     Dates: start: 20050125, end: 20050201
  3. RIBAVIRIN [Suspect]
     Indication: HEPATITIS C
     Dosage: SEE  IMAGE
     Route: 048
     Dates: start: 20050201
  4. ACETAMINOPHEN [Concomitant]
  5. DIPHENHYDRAMINE HCL [Concomitant]

REACTIONS (3)
  - DEHYDRATION [None]
  - HYPOTENSION [None]
  - SYNCOPE VASOVAGAL [None]
